FAERS Safety Report 4482147-7 (Version None)
Quarter: 2004Q4

REPORT INFORMATION
  Report Type: 
  Country: None (occurrence: None)
  Receive Date: 20041020
  Receipt Date: 20041001
  Transmission Date: 20050328
  Serious: Yes (Other)
  Sender: FDA-Public Use
  Company Number: USA041079903

PATIENT
  Age: 19 Year
  Sex: Female

DRUGS (3)
  1. SYMBYAX [Suspect]
  2. STRATTERA [Suspect]
     Dosage: 25 MG/1 DAY
  3. DOXYCYCLINE [Concomitant]

REACTIONS (3)
  - AMNESIA [None]
  - LOSS OF CONSCIOUSNESS [None]
  - ROAD TRAFFIC ACCIDENT [None]
